FAERS Safety Report 5252295-2 (Version None)
Quarter: 2007Q1

REPORT INFORMATION
  Report Type: 
  Country: None (occurrence: None)
  Receive Date: 20070301
  Receipt Date: 20060119
  Transmission Date: 20070707
  Serious: No
  Sender: FDA-Public Use
  Company Number: US-BRISTOL-MYERS SQUIBB COMPANY-13254321

PATIENT
  Age: 44 Year
  Sex: Female
  Weight: 81 kg

DRUGS (10)
  1. TAXOL [Suspect]
     Indication: OVARIAN CANCER
     Route: 042
     Dates: start: 20060112
  2. PARAPLATIN [Suspect]
     Route: 042
     Dates: start: 20060112
  3. DECADRON [Concomitant]
     Route: 048
  4. DECADRON [Concomitant]
     Indication: PREMEDICATION
     Route: 042
  5. ALOXI [Concomitant]
     Route: 042
  6. BENADRYL [Concomitant]
     Route: 042
  7. PEPCID [Concomitant]
     Route: 042
  8. AMARYL [Concomitant]
  9. ZETIA [Concomitant]
  10. METFORMIN HCL [Concomitant]

REACTIONS (1)
  - RASH [None]
